FAERS Safety Report 22306749 (Version 2)
Quarter: 2023Q2

REPORT INFORMATION
  Report Type: Report from Study
  Country: BE (occurrence: BE)
  Receive Date: 20230511
  Receipt Date: 20230511
  Transmission Date: 20230722
  Serious: No
  Sender: FDA-Public Use
  Company Number: BE-ABBVIE-4749159

PATIENT
  Age: 69 Year
  Sex: Female

DRUGS (12)
  1. UPADACITINIB [Suspect]
     Active Substance: UPADACITINIB
     Indication: Giant cell arteritis
     Route: 048
     Dates: start: 20210607
  2. PREDNISOLONE [Suspect]
     Active Substance: PREDNISOLONE
     Indication: Giant cell arteritis
     Dosage: PER CS OPEN-LABEL TAPER SCHEDULE
     Route: 048
     Dates: start: 20210607, end: 20210627
  3. PREDNISOLONE [Suspect]
     Active Substance: PREDNISOLONE
     Indication: Giant cell arteritis
     Dosage: 26-WK CS TAPER
     Route: 048
     Dates: start: 20210628
  4. CALCIUM, CARBONATE (STEOVIT) [Concomitant]
     Indication: Osteopenia
     Route: 048
     Dates: start: 20211218
  5. COLECALCIFEROL (STEOVIT) [Concomitant]
     Indication: Osteopenia
     Route: 048
     Dates: start: 20150505
  6. AMLODIPINE, BESILATE (EXFORGE) [Concomitant]
     Indication: Hypertension
     Route: 048
     Dates: start: 20210614
  7. VALSARTAN (EXFORGE) [Concomitant]
     Indication: Hypertension
     Route: 048
     Dates: start: 20210614
  8. MAGNESIUM [Concomitant]
     Active Substance: MAGNESIUM
     Indication: Muscle spasms
     Dosage: 1 TAB
     Route: 048
     Dates: start: 20210705, end: 20220301
  9. VOLTAREN [Concomitant]
     Active Substance: DICLOFENAC SODIUM
     Indication: Back pain
     Dosage: TIME INTERVAL: AS NECESSARY: 1 APPLICATION
     Route: 061
     Dates: start: 20210815
  10. ACETAMINOPHEN [Concomitant]
     Active Substance: ACETAMINOPHEN
     Indication: Back pain
     Dosage: TIME INTERVAL: AS NECESSARY
     Route: 048
     Dates: start: 20211001
  11. FOSAMAX [Concomitant]
     Active Substance: ALENDRONATE SODIUM
     Indication: Osteoporosis prophylaxis
     Route: 048
     Dates: start: 20211123, end: 202302
  12. PANTOMED [Concomitant]
     Indication: Dyspepsia
     Route: 048
     Dates: start: 202111, end: 20220703

REACTIONS (1)
  - Retinal tear [Not Recovered/Not Resolved]

NARRATIVE: CASE EVENT DATE: 20211218
